FAERS Safety Report 7800812-8 (Version None)
Quarter: 2011Q4

REPORT INFORMATION
  Report Type: 
  Country: None (occurrence: None)
  Receive Date: 20111006
  Receipt Date: 20110927
  Transmission Date: 20120403
  Serious: Yes (Hospitalization)
  Sender: FDA-Public Use
  Company Number: US-VERTEX PHARMACEUTICALS INC.-AE-2011-000386

PATIENT
  Sex: Female
  Weight: 61.5 kg

DRUGS (10)
  1. VX-950 [Suspect]
     Indication: HEPATITIS C
     Route: 048
     Dates: start: 20110414, end: 20110622
  2. RIBAVIRIN [Suspect]
     Route: 048
     Dates: start: 20110502, end: 20110609
  3. PHENERGAN HCL [Concomitant]
     Route: 048
     Dates: start: 20110415
  4. RIBAVIRIN [Suspect]
     Indication: HEPATITIS C
     Route: 048
     Dates: start: 20110414, end: 20110501
  5. PREVACID [Concomitant]
  6. GABAPENTIN [Concomitant]
     Indication: PAIN
  7. PEGINTERFERON ALFA-2A [Suspect]
     Indication: HEPATITIS C
     Route: 058
     Dates: start: 20110414, end: 20110601
  8. NADOLOL [Concomitant]
  9. PEGINTERFERON ALFA-2A [Suspect]
     Dates: start: 20110602, end: 20110615
  10. LORTAB [Concomitant]
     Indication: MUSCULOSKELETAL PAIN
     Route: 048

REACTIONS (5)
  - PANCYTOPENIA [None]
  - BONE MARROW FAILURE [None]
  - VOMITING [None]
  - NAUSEA [None]
  - VAGINAL HAEMORRHAGE [None]
